FAERS Safety Report 5450494-8 (Version None)
Quarter: 2007Q3

REPORT INFORMATION
  Report Type: 
  Country: None (occurrence: None)
  Receive Date: 20070912
  Receipt Date: 20070829
  Transmission Date: 20080115
  Serious: No
  Sender: FDA-Public Use
  Company Number: US-BOEHRINGER INGELHEIM PHARMACEUTICALS, INC.-2007-BP-20089BP

PATIENT
  Age: 36 Year
  Sex: Female
  Weight: 71 kg

DRUGS (2)
  1. SPIRIVA [Suspect]
     Indication: ASTHMA EXERCISE INDUCED
     Route: 055
     Dates: start: 20070801, end: 20070828
  2. PROVENTIL [Suspect]
     Indication: ASTHMA EXERCISE INDUCED
     Dates: start: 20070801

REACTIONS (4)
  - ASTHMA [None]
  - INCREASED APPETITE [None]
  - OEDEMA PERIPHERAL [None]
  - WEIGHT INCREASED [None]
